FAERS Safety Report 10028208 (Version 3)
Quarter: 2014Q1

REPORT INFORMATION
  Report Type: Report from Study
  Country: DE (occurrence: DE)
  Receive Date: 20140321
  Receipt Date: 20140325
  Transmission Date: 20141002
  Serious: Yes (Hospitalization)
  Sender: FDA-Public Use
  Company Number: DE-009507513-1304DEU016421

PATIENT
  Age: 48 Year
  Sex: Female
  Weight: 62 kg

DRUGS (9)
  1. BOCEPREVIR [Suspect]
     Indication: HEPATITIS C
     Dosage: 2400 MG/DAY
     Route: 048
     Dates: start: 20130220, end: 20130403
  2. BOCEPREVIR [Suspect]
     Dosage: 2400 MG/DAY
     Route: 048
     Dates: start: 20130404, end: 20130809
  3. BOCEPREVIR [Suspect]
     Dosage: 2400 MG/DAY
     Route: 048
     Dates: start: 20130815, end: 20131006
  4. REBETOL [Suspect]
     Indication: HEPATITIS C
     Dosage: 800 MG, QD
     Route: 048
     Dates: start: 20130118, end: 20130403
  5. REBETOL [Suspect]
     Dosage: 600 MG, QD
     Route: 048
     Dates: start: 20130404, end: 20130809
  6. REBETOL [Suspect]
     Dosage: 600 MG, QD
     Route: 048
     Dates: start: 20130815, end: 20131122
  7. PEGINTRON [Suspect]
     Indication: HEPATITIS C
     Dosage: 1.5 UG/KG/WEEK,
     Route: 058
     Dates: start: 20130118, end: 20130403
  8. PEGINTRON [Suspect]
     Dosage: 1.5 UG/KG/WEEK
     Route: 058
     Dates: start: 20130404, end: 20130809
  9. PEGINTRON [Suspect]
     Dosage: 1.5 MICROGRAM/KG, QW
     Route: 058
     Dates: start: 20130815, end: 20131115

REACTIONS (2)
  - Alcohol abuse [Recovered/Resolved]
  - Anaemia [Not Recovered/Not Resolved]
